FAERS Safety Report 8362461-5 (Version None)
Quarter: 2012Q2

REPORT INFORMATION
  Report Type: 
  Country: None (occurrence: None)
  Receive Date: 20120516
  Receipt Date: 20120504
  Transmission Date: 20120825
  Serious: Yes (Other)
  Sender: FDA-Public Use
  Company Number: US-RB-039570-12

PATIENT
  Age: 51 Year
  Sex: Female

DRUGS (1)
  1. MUCINEX DM [Suspect]
     Indication: PRODUCT USED FOR UNKNOWN INDICATION
     Route: 048
     Dates: start: 20120501

REACTIONS (5)
  - DYSPNOEA [None]
  - PARAESTHESIA [None]
  - DIARRHOEA [None]
  - EXPIRED DRUG ADMINISTERED [None]
  - ABDOMINAL PAIN UPPER [None]
